FAERS Safety Report 9790939 (Version 1)
Quarter: 2013Q4

REPORT INFORMATION
  Report Type: Spontaneous
  Country: US (occurrence: US)
  Receive Date: 20131231
  Receipt Date: 20131231
  Transmission Date: 20140711
  Serious: Yes (Hospitalization)
  Sender: FDA-Public Use
  Company Number: US-MALLINCKRODT-T201305184

PATIENT
  Age: 64 Year
  Sex: Male

DRUGS (1)
  1. CONRAY [Suspect]
     Indication: ANGIOGRAM CEREBRAL
     Dosage: 100 ML, SINGLE
     Route: 065

REACTIONS (1)
  - Status epilepticus [Recovered/Resolved]
